FAERS Safety Report 9563442 (Version 1)
Quarter: 2013Q3

REPORT INFORMATION
  Report Type: Spontaneous
  Country: US (occurrence: None)
  Receive Date: 20130926
  Receipt Date: 20130926
  Transmission Date: 20140515
  Serious: Yes (Other)
  Sender: FDA-Public Use
  Company Number: None

PATIENT
  Age: 40 Year
  Sex: Male

DRUGS (1)
  1. LAMICTAL [Suspect]
     Indication: BIPOLAR I DISORDER
     Route: 048
     Dates: start: 20130912, end: 20130915

REACTIONS (6)
  - Renal impairment [None]
  - Drug ineffective [None]
  - Skin disorder [None]
  - Erythema [None]
  - Pain [None]
  - Swelling [None]
